FAERS Safety Report 17212495 (Version 2)
Quarter: 2020Q1

REPORT INFORMATION
  Report Type: Report from Study
  Country: DE (occurrence: DE)
  Receive Date: 20191230
  Receipt Date: 20200102
  Transmission Date: 20200409
  Serious: Yes (Death, Hospitalization)
  Sender: FDA-Public Use
  Company Number: DE-TEVA-2019-DE-1159837

PATIENT
  Age: 68 Year
  Sex: Male
  Weight: 94 kg

DRUGS (6)
  1. AMPICILLIN [Concomitant]
     Active Substance: AMPICILLIN
     Indication: PRODUCT USED FOR UNKNOWN INDICATION
     Dosage: 6 GRAM DAILY;  6 G GRAM(S) EVERY DAY
     Route: 042
     Dates: start: 20161018, end: 20161023
  2. SULBACTAM [Concomitant]
     Active Substance: SULBACTAM
     Indication: PRODUCT USED FOR UNKNOWN INDICATION
     Dosage: 3 GRAM DAILY; DAILY DOSE: 3 G GRAM(S) EVERY DAY
     Route: 042
     Dates: start: 20161018, end: 20161023
  3. DOCETAXEL. [Suspect]
     Active Substance: DOCETAXEL
     Indication: NON-SMALL CELL LUNG CANCER
     Dosage: 110 MILLIGRAM DAILY; DAILY DOSE: 110 MG MILLIGRAM(S) EVERY DAY
     Route: 065
     Dates: start: 20161027, end: 20161224
  4. DOCETAXEL. [Suspect]
     Active Substance: DOCETAXEL
     Dosage: 150 MILLIGRAM DAILY; DAILY DOSE: 150 MG MILLIGRAM(S) EVERY DAY
     Route: 065
  5. BIBF 1120 [Suspect]
     Active Substance: NINTEDANIB
     Indication: NON-SMALL CELL LUNG CANCER
     Dosage: DAILY DOSE: 400 MG MILLIGRAM(S) EVERY DAY
     Route: 065
     Dates: start: 20161027, end: 20161224
  6. BIBF 1120 [Suspect]
     Active Substance: NINTEDANIB
     Dosage: 400 MG
     Route: 065

REACTIONS (3)
  - Leukopenia [Fatal]
  - Mucosal inflammation [Fatal]
  - Malignant neoplasm progression [Fatal]

NARRATIVE: CASE EVENT DATE: 20161013
